FAERS Safety Report 5499813-7 (Version None)
Quarter: 2007Q4

REPORT INFORMATION
  Report Type: 
  Country: None (occurrence: None)
  Receive Date: 20071026
  Receipt Date: 20071016
  Transmission Date: 20080405
  Serious: No
  Sender: FDA-Public Use
  Company Number: US-PFIZER INC-2007076188

PATIENT
  Sex: Male
  Weight: 92.7 kg

DRUGS (4)
  1. CHANTIX [Suspect]
     Indication: SMOKING CESSATION THERAPY
     Route: 048
  2. CAPTOPRIL [Concomitant]
  3. TAMSULOSIN HYDROCHLORIDE [Concomitant]
  4. COREG [Concomitant]

REACTIONS (2)
  - BLOOD CHOLESTEROL [None]
  - BLOOD PRESSURE INCREASED [None]
